FAERS Safety Report 9825352 (Version 1)
Quarter: 2013Q4

REPORT INFORMATION
  Report Type: Spontaneous
  Country: US (occurrence: None)
  Receive Date: 20131025
  Receipt Date: 20131025
  Transmission Date: 20140711
  Serious: Yes (Other)
  Sender: FDA-Public Use
  Company Number: AP356-00074-SPO-US

PATIENT
  Age: 44 Year
  Sex: Female
  Weight: 83 kg

DRUGS (4)
  1. BELVIQ [Suspect]
     Indication: OBESITY
     Dosage: 20 MG, 2 IN 1 D, ORAL
     Route: 048
     Dates: start: 20130717, end: 20130726
  2. SINGULAIR [Concomitant]
  3. DEXILANT (DEXLANSOPRAZOLE) [Concomitant]
  4. ZYRTEC (CETIRIZINE HYDROCHLORIDE) [Concomitant]

REACTIONS (3)
  - Dizziness [None]
  - Nightmare [None]
  - Fatigue [None]
